FAERS Safety Report 9575443 (Version 1)
Quarter: 2013Q4

REPORT INFORMATION
  Report Type: Spontaneous
  Country: US (occurrence: US)
  Receive Date: 20131001
  Receipt Date: 20131001
  Transmission Date: 20140711
  Serious: No
  Sender: FDA-Public Use
  Company Number: US-AMGEN-USASP2013002096

PATIENT
  Age: 59 Year
  Sex: Male
  Weight: 130.16 kg

DRUGS (6)
  1. ENBREL [Suspect]
     Indication: PRODUCT USED FOR UNKNOWN INDICATION
     Dosage: 25 MG, 2 TIMES/WK
     Route: 058
  2. LISINOPRIL [Concomitant]
     Dosage: 20 MG, UNK
  3. FENOFIBRATE [Concomitant]
     Dosage: 67 MG, UNK
  4. LEVOTHYROXINE [Concomitant]
     Dosage: 100 MUG, UNK
  5. HYDROCHLOROTH [Concomitant]
     Dosage: 12.5 MG, UNK
  6. MYCELEX TROCHE [Concomitant]
     Dosage: 10 MG, UNK

REACTIONS (2)
  - Throat irritation [Unknown]
  - Rhinorrhoea [Unknown]
